FAERS Safety Report 8908754 (Version 1)
Quarter: 2012Q4

REPORT INFORMATION
  Report Type: 
  Country: VE (occurrence: VE)
  Receive Date: 20121114
  Receipt Date: 20121114
  Transmission Date: 20130627
  Serious: Yes (Other)
  Sender: FDA-Public Use
  Company Number: VE-ROCHE-1154661

PATIENT
  Age: 72 Year
  Sex: Male

DRUGS (3)
  1. HERCEPTIN [Suspect]
     Indication: GASTRIC CANCER
     Route: 041
     Dates: start: 20121019
  2. CISPLATIN [Suspect]
     Indication: GASTRIC CANCER
     Route: 041
  3. CAPECITABINE [Concomitant]
     Indication: GASTRIC CANCER
     Route: 048
     Dates: start: 20121019

REACTIONS (1)
  - Haematuria [Not Recovered/Not Resolved]
